FAERS Safety Report 9528212 (Version 2)
Quarter: 2013Q4

REPORT INFORMATION
  Report Type: Report from Study
  Country: US (occurrence: US)
  Receive Date: 20130917
  Receipt Date: 20131023
  Transmission Date: 20140711
  Serious: Yes (Other)
  Sender: FDA-Public Use
  Company Number: PHEH2013US019122

PATIENT
  Sex: Female

DRUGS (1)
  1. TASIGNA [Suspect]
     Indication: CHRONIC MYELOID LEUKAEMIA
     Route: 048
     Dates: end: 201308

REACTIONS (6)
  - Angiopathy [Unknown]
  - Blood glucose abnormal [Unknown]
  - Rash generalised [Unknown]
  - Alopecia [Unknown]
  - Diarrhoea [Unknown]
  - Dyspepsia [Unknown]
